FAERS Safety Report 4679347-X (Version None)
Quarter: 2005Q2

REPORT INFORMATION
  Report Type: 
  Country: None (occurrence: None)
  Receive Date: 20050602
  Receipt Date: 20050429
  Transmission Date: 20051028
  Serious: Yes (Life-Threatening, Disabling, Other)
  Sender: FDA-Public Use
  Company Number: US-GLAXOSMITHKLINE-A0556316A

PATIENT
  Age: 13 Year
  Sex: Female
  Weight: 55 kg

DRUGS (6)
  1. ADVAIR DISKUS 100/50 [Suspect]
     Indication: ASTHMA
     Route: 055
     Dates: start: 20040701, end: 20050415
  2. FLOVENT [Concomitant]
     Dosage: 110MCG TWICE PER DAY
     Dates: start: 20050201, end: 20050421
  3. PULMICORT [Concomitant]
     Dosage: .5MG TWICE PER DAY
     Route: 055
     Dates: start: 20050415, end: 20050422
  4. PREDNISONE TAB [Concomitant]
     Dosage: 40MG TWICE PER DAY
     Route: 048
     Dates: start: 20050418, end: 20050421
  5. ALLEGRA [Concomitant]
  6. SINGULAIR [Concomitant]
     Dosage: 10MG PER DAY
     Route: 048

REACTIONS (10)
  - AGITATION [None]
  - DECREASED APPETITE [None]
  - DECREASED INTEREST [None]
  - DEPRESSED MOOD [None]
  - DEPRESSION [None]
  - DISTURBANCE IN ATTENTION [None]
  - IRRITABILITY [None]
  - MOOD SWINGS [None]
  - PSYCHOTIC DISORDER [None]
  - SUICIDAL IDEATION [None]
